FAERS Safety Report 13228658 (Version 1)
Quarter: 2017Q1

REPORT INFORMATION
  Report Type: Spontaneous
  Country: US (occurrence: US)
  Receive Date: 20170213
  Receipt Date: 20170213
  Transmission Date: 20170428
  Serious: No
  Sender: FDA-Public Use
  Company Number: US-ROCHE-1840917

PATIENT
  Sex: Female

DRUGS (9)
  1. GRAPEFRUIT SEED EXTRACT [Concomitant]
     Active Substance: GRAPEFRUIT SEED EXTRACT
  2. POMEGRANATE [Concomitant]
     Active Substance: POMEGRANATE
  3. BIOTIN [Concomitant]
     Active Substance: BIOTIN
  4. XANAX [Concomitant]
     Active Substance: ALPRAZOLAM
  5. HYDROXYZINE [Concomitant]
     Active Substance: HYDROXYZINE HYDROCHLORIDE
  6. XOLAIR [Suspect]
     Active Substance: OMALIZUMAB
     Route: 058
     Dates: start: 20160923
  7. PERCOCET [Concomitant]
     Active Substance: ACETAMINOPHEN\OXYCODONE HYDROCHLORIDE
  8. XOLAIR [Suspect]
     Active Substance: OMALIZUMAB
     Indication: PRURITUS
     Route: 058
     Dates: start: 20160826
  9. NEURONTIN [Concomitant]
     Active Substance: GABAPENTIN

REACTIONS (4)
  - Hyperventilation [Unknown]
  - Drug ineffective [Unknown]
  - Pruritus [Unknown]
  - Tremor [Unknown]
